FAERS Safety Report 6770062-5 (Version None)
Quarter: 2010Q2

REPORT INFORMATION
  Report Type: 
  Country: None (occurrence: None)
  Receive Date: 20100615
  Receipt Date: 20100609
  Transmission Date: 20101027
  Serious: Yes (Other)
  Sender: FDA-Public Use
  Company Number: GXKR2007GB08202

PATIENT
  Age: 9 Year
  Weight: 23 kg

DRUGS (2)
  1. GENTAMICIN (NGX) [Interacting]
     Route: 065
  2. CEFUROXIME [Suspect]
     Route: 065

REACTIONS (3)
  - BLOOD CREATININE INCREASED [None]
  - RENAL FAILURE ACUTE [None]
  - RENAL TUBULAR NECROSIS [None]
